FAERS Safety Report 8098597-6 (Version None)
Quarter: 2012Q1

REPORT INFORMATION
  Report Type: 
  Country: None (occurrence: None)
  Receive Date: 20120129
  Receipt Date: 20110914
  Transmission Date: 20120608
  Serious: No
  Sender: FDA-Public Use
  Company Number: US-ABBOTT-11P-163-0854975-00

PATIENT
  Sex: Female

DRUGS (8)
  1. UNNAMED TOPICAL MEDICATION [Concomitant]
     Indication: PSORIASIS
     Route: 061
  2. ADVAIR DISKUS 100/50 [Concomitant]
     Indication: SINUS DISORDER
  3. PREMARIN [Concomitant]
     Indication: PRODUCT USED FOR UNKNOWN INDICATION
  4. TRAMADOL HCL [Concomitant]
     Indication: PAIN
  5. NIFEDIPINE [Concomitant]
     Indication: HYPERTENSION
  6. HUMIRA [Suspect]
     Indication: PSORIASIS
     Route: 058
     Dates: end: 20110708
  7. KEFLEX [Concomitant]
     Indication: PSORIASIS
  8. DILTIAZEM HCL [Concomitant]
     Indication: HYPERTENSION

REACTIONS (16)
  - CELLULITIS [None]
  - OEDEMA PERIPHERAL [None]
  - PAIN [None]
  - MALAISE [None]
  - COUGH [None]
  - MEMORY IMPAIRMENT [None]
  - IMMUNE SYSTEM DISORDER [None]
  - ASTHENIA [None]
  - RESPIRATORY TRACT INFECTION [None]
  - CHILLS [None]
  - RASH MACULO-PAPULAR [None]
  - FEELING HOT [None]
  - INFECTION [None]
  - TREMOR [None]
  - DYSPNOEA [None]
  - WHITE BLOOD CELL COUNT INCREASED [None]
